FAERS Safety Report 9735457 (Version 1)
Quarter: 2013Q4

REPORT INFORMATION
  Report Type: Spontaneous
  Country: US (occurrence: US)
  Receive Date: 20131206
  Receipt Date: 20131206
  Transmission Date: 20140711
  Serious: No
  Sender: FDA-Public Use
  Company Number: US-GILEAD-2009-0022846

PATIENT
  Sex: Male
  Weight: 107.95 kg

DRUGS (14)
  1. LETAIRIS [Suspect]
     Route: 048
     Dates: start: 20080909
  2. OXYGEN [Concomitant]
  3. LANTUS [Concomitant]
  4. HUMULIN R [Concomitant]
  5. RENAGEL [Concomitant]
  6. HEPARIN [Concomitant]
  7. CEPHALEXIN [Concomitant]
  8. CLOBETASOL [Concomitant]
  9. PRILOSEC [Concomitant]
  10. ZEMPLAR [Concomitant]
  11. TRICOR [Concomitant]
  12. ASPIRIN [Concomitant]
  13. ANTACID CALCIUM [Concomitant]
  14. VITAMIN [Concomitant]

REACTIONS (1)
  - Asthenia [Unknown]
